FAERS Safety Report 12869103 (Version 3)
Quarter: 2017Q1

REPORT INFORMATION
  Report Type: Spontaneous
  Country: US (occurrence: US)
  Receive Date: 20161021
  Receipt Date: 20170203
  Transmission Date: 20170428
  Serious: No
  Sender: FDA-Public Use
  Company Number: US-PFIZER INC-2016488007

PATIENT
  Age: 10 Year
  Sex: Male

DRUGS (1)
  1. FLAGYL [Suspect]
     Active Substance: METRONIDAZOLE\METRONIDAZOLE HYDROCHLORIDE
     Indication: GIARDIASIS
     Dosage: UNK
     Dates: start: 20160516

REACTIONS (2)
  - Product use issue [Unknown]
  - Weight increased [Unknown]
